FAERS Safety Report 6126398-4 (Version None)
Quarter: 2009Q1

REPORT INFORMATION
  Report Type: 
  Country: None (occurrence: None)
  Receive Date: 20090320
  Receipt Date: 20090312
  Transmission Date: 20090719
  Serious: Yes (Other)
  Sender: FDA-Public Use
  Company Number: BR-BAYER-200913457LA

PATIENT
  Age: 45 Year
  Sex: Female
  Weight: 96 kg

DRUGS (3)
  1. MIRENA [Suspect]
     Indication: MENSTRUAL CYCLE MANAGEMENT
     Route: 015
     Dates: start: 20080404
  2. PONSTAN [Concomitant]
     Indication: PELVIC PAIN
     Route: 048
  3. BUSCOPAN [Concomitant]
     Indication: PELVIC PAIN
     Route: 048

REACTIONS (2)
  - METRORRHAGIA [None]
  - SOMNOLENCE [None]
